FAERS Safety Report 22343332 (Version 2)
Quarter: 2023Q2

REPORT INFORMATION
  Report Type: Spontaneous
  Country: TH (occurrence: TH)
  Receive Date: 20230519
  Receipt Date: 20230605
  Transmission Date: 20230721
  Serious: Yes (Hospitalization)
  Sender: FDA-Public Use
  Company Number: TH-NOVOPROD-1062748

PATIENT
  Age: 28 Year
  Sex: Female

DRUGS (1)
  1. SAXENDA [Suspect]
     Active Substance: LIRAGLUTIDE
     Indication: Product used for unknown indication
     Dosage: 0.6 MG
     Dates: start: 20230504, end: 20230508

REACTIONS (2)
  - Dyspnoea [Unknown]
  - Fatigue [Unknown]
